FAERS Safety Report 6879491-2 (Version None)
Quarter: 2010Q3

REPORT INFORMATION
  Report Type: 
  Country: None (occurrence: None)
  Receive Date: 20100727
  Receipt Date: 20100716
  Transmission Date: 20110219
  Serious: Yes (Hospitalization, Other)
  Sender: FDA-Public Use
  Company Number: RO-ABBOTT-10P-135-0634214-00

PATIENT
  Sex: Male
  Weight: 90 kg

DRUGS (2)
  1. HUMIRA [Suspect]
     Indication: RHEUMATOID ARTHRITIS
     Route: 058
     Dates: start: 20070122, end: 20100304
  2. METHOTREXAT [Concomitant]
     Indication: RHEUMATOID ARTHRITIS
     Route: 030
     Dates: start: 20060905, end: 20100304

REACTIONS (4)
  - GENERAL PHYSICAL HEALTH DETERIORATION [None]
  - LUNG ABSCESS [None]
  - PULMONARY TUBERCULOSIS [None]
  - PYOTHORAX [None]
